FAERS Safety Report 18714041 (Version 1)
Quarter: 2021Q1

REPORT INFORMATION
  Report Type: Spontaneous
  Country: US (occurrence: US)
  Receive Date: 20210107
  Receipt Date: 20210107
  Transmission Date: 20210419
  Serious: Yes (Hospitalization, Other)
  Sender: FDA-Public Use
  Company Number: US-SA-2020SA377204

PATIENT

DRUGS (6)
  1. RUXOLITINIB [RUXOLITINIB PHOSPHATE] [Concomitant]
     Indication: CHRONIC GRAFT VERSUS HOST DISEASE IN INTESTINE
  2. PLAVIX [Suspect]
     Active Substance: CLOPIDOGREL BISULFATE
     Dosage: UNK
     Route: 065
  3. RUXOLITINIB [RUXOLITINIB PHOSPHATE] [Concomitant]
     Indication: CHRONIC GRAFT VERSUS HOST DISEASE ORAL
     Dosage: 2.5 MG, QD
     Dates: start: 20200311
  4. RUXOLITINIB [RUXOLITINIB PHOSPHATE] [Concomitant]
     Indication: CHRONIC GRAFT VERSUS HOST DISEASE IN EYE
  5. LOVENOX [Concomitant]
     Active Substance: ENOXAPARIN SODIUM
  6. PREDNISONE. [Concomitant]
     Active Substance: PREDNISONE
     Dosage: UNK

REACTIONS (3)
  - Melaena [Unknown]
  - Gastrointestinal haemorrhage [Recovered/Resolved]
  - Anaemia [Recovered/Resolved]

NARRATIVE: CASE EVENT DATE: 20200812
